FAERS Safety Report 4541215-1 (Version None)
Quarter: 2004Q4

REPORT INFORMATION
  Report Type: 
  Country: None (occurrence: None)
  Receive Date: 20041227
  Receipt Date: 20041222
  Transmission Date: 20050328
  Serious: Yes (Death)
  Sender: FDA-Public Use
  Company Number: THQ2003A01376

PATIENT
  Age: 72 Year
  Sex: Male

DRUGS (5)
  1. LANSOPRAZOLE [Suspect]
     Indication: DYSPEPSIA
     Dosage: 60 MG (30 MG, 2 IN 1D)
     Route: 048
     Dates: start: 20030710, end: 20030731
  2. CLOPIDOGREL (CLOPIDOGREL) [Concomitant]
  3. ADIZEM MODIFIED RELEASE (DILTIAZEM HYDROCHLORIDE) [Concomitant]
  4. SIMVASTATIN [Concomitant]
  5. THIAMINE (THIAMINE) [Concomitant]

REACTIONS (14)
  - CHILLS [None]
  - ERYTHEMA MULTIFORME [None]
  - HAEMODIALYSIS [None]
  - HYPOVOLAEMIA [None]
  - LEFT VENTRICULAR FAILURE [None]
  - LYMPHOPENIA [None]
  - MEDICATION ERROR [None]
  - MULTI-ORGAN FAILURE [None]
  - OLIGURIA [None]
  - RESPIRATORY ARREST [None]
  - SEPSIS [None]
  - TACHYCARDIA [None]
  - THROMBOCYTOPENIA [None]
  - TOXIC EPIDERMAL NECROLYSIS [None]
